FAERS Safety Report 9114379 (Version 8)
Quarter: 2014Q2

REPORT INFORMATION
  Report Type: Spontaneous
  Country: US (occurrence: US)
  Receive Date: 20130209
  Receipt Date: 20140414
  Transmission Date: 20141212
  Serious: Yes (Hospitalization)
  Sender: FDA-Public Use
  Company Number: US-B.I. PHARMACEUTICALS,INC./RIDGEFIELD-2013-BI-03511BP

PATIENT
  Age: 81 Year
  Sex: Male
  Weight: 88.45 kg

DRUGS (11)
  1. PRADAXA [Suspect]
     Indication: ANTICOAGULANT THERAPY
     Dosage: 300 MG
     Route: 048
     Dates: start: 20111112, end: 20111208
  2. PRADAXA [Suspect]
     Indication: ATRIAL FIBRILLATION
  3. ASPIRIN [Suspect]
     Indication: PRODUCT USED FOR UNKNOWN INDICATION
     Dosage: 81 MG
     Route: 048
  4. PRANDIN [Concomitant]
     Indication: DIABETES MELLITUS
     Dosage: 4 MG
     Route: 065
  5. CARDURA [Concomitant]
     Indication: HYPERTENSION
     Dosage: 8 MG
     Route: 065
  6. JANUMET [Concomitant]
     Indication: DIABETES MELLITUS
     Route: 065
  7. PRAVASTATIN [Concomitant]
     Indication: HYPERTENSION
     Dosage: 40 MG
     Route: 065
     Dates: start: 20111111
  8. UNIRETIC [Concomitant]
     Indication: HYPERTENSION
     Route: 065
  9. SOTOLOL [Concomitant]
     Route: 065
  10. MOEXIPRIL [Concomitant]
     Indication: HYPERTENSION
     Route: 065
  11. CEFDINIR [Concomitant]
     Route: 065

REACTIONS (4)
  - Gastrointestinal haemorrhage [Recovered/Resolved]
  - Haemorrhagic anaemia [Recovered/Resolved]
  - Duodenal ulcer [Unknown]
  - Epistaxis [Unknown]
